FAERS Safety Report 6618119-3 (Version None)
Quarter: 2010Q1

REPORT INFORMATION
  Report Type: 
  Country: None (occurrence: None)
  Receive Date: 20100308
  Receipt Date: 20100224
  Transmission Date: 20100710
  Serious: Yes (Hospitalization)
  Sender: FDA-Public Use
  Company Number: FI-ROCHE-687533

PATIENT
  Sex: Male
  Weight: 72 kg

DRUGS (2)
  1. BEVACIZUMAB [Suspect]
     Indication: COLORECTAL CANCER
     Route: 042
     Dates: start: 20081127, end: 20100126
  2. CAPECITABINE [Suspect]
     Indication: COLORECTAL CANCER
     Dosage: FREQUENCY: 14 DAYS CYCLE
     Route: 048
     Dates: start: 20081127, end: 20100204

REACTIONS (1)
  - DIVERTICULITIS [None]
